FAERS Safety Report 22181150 (Version 1)
Quarter: 2023Q2

REPORT INFORMATION
  Report Type: Spontaneous
  Country: US (occurrence: US)
  Receive Date: 20230406
  Receipt Date: 20230406
  Transmission Date: 20230722
  Serious: Yes (Hospitalization)
  Sender: FDA-Public Use
  Company Number: US-PFIZER INC-PV202300035314

PATIENT
  Age: 26 Year
  Sex: Female
  Weight: 73.016 kg

DRUGS (1)
  1. DEPO-PROVERA [Suspect]
     Active Substance: MEDROXYPROGESTERONE ACETATE
     Indication: Contraception
     Dosage: EVERY 3 MONTHS
     Dates: start: 1994, end: 1998

REACTIONS (6)
  - Renal failure [Not Recovered/Not Resolved]
  - Sinus disorder [Unknown]
  - Hypersensitivity [Unknown]
  - Oligomenorrhoea [Unknown]
  - Infection [Unknown]
  - Depressed mood [Unknown]

NARRATIVE: CASE EVENT DATE: 19980101
